FAERS Safety Report 5919298-3 (Version None)
Quarter: 2008Q4

REPORT INFORMATION
  Report Type: 
  Country: None (occurrence: None)
  Receive Date: 20081015
  Receipt Date: 20081006
  Transmission Date: 20090506
  Serious: Yes (Hospitalization, Other)
  Sender: FDA-Public Use
  Company Number: PHHY2008ES23559

PATIENT
  Age: 65 Year
  Sex: Female

DRUGS (5)
  1. LUDIOMIL [Suspect]
     Route: 048
  2. LEXATIN [Interacting]
     Dosage: 1.5 MG/DAY
     Route: 048
  3. ORFIDAL [Interacting]
     Route: 048
  4. SEROXAT [Interacting]
     Dosage: 10 MG
     Route: 048
  5. CIPROFLOXACIN [Interacting]
     Dosage: 4 CYCLES OF 1 WEEK
     Dates: end: 20080223

REACTIONS (11)
  - APATHY [None]
  - ASTHENIA [None]
  - DEPERSONALISATION [None]
  - DEPRESSED LEVEL OF CONSCIOUSNESS [None]
  - DRUG INTERACTION [None]
  - GENERAL PHYSICAL HEALTH DETERIORATION [None]
  - PYREXIA [None]
  - SOMNOLENCE [None]
  - TOXIC ENCEPHALOPATHY [None]
  - URINARY TRACT INFECTION [None]
  - URINE ANALYSIS ABNORMAL [None]
